FAERS Safety Report 15263015 (Version 1)
Quarter: 2018Q3

REPORT INFORMATION
  Report Type: Spontaneous
  Country: US (occurrence: US)
  Receive Date: 20180810
  Receipt Date: 20180810
  Transmission Date: 20181010
  Serious: No
  Sender: FDA-Public Use
  Company Number: US-ELI_LILLY_AND_COMPANY-US201808004228

PATIENT
  Age: 75 Year
  Sex: Male

DRUGS (1)
  1. HUMALOG MIX75/25 [Suspect]
     Active Substance: INSULIN LISPRO
     Indication: PRODUCT USED FOR UNKNOWN INDICATION
     Dosage: 21 U, UNKNOWN (20?21)
     Route: 065

REACTIONS (8)
  - Dizziness [Unknown]
  - Visual impairment [Unknown]
  - Tension headache [Unknown]
  - Feeling abnormal [Unknown]
  - Blood glucose decreased [Unknown]
  - Blood glucose increased [Unknown]
  - Drug dose omission [Unknown]
  - Back pain [Unknown]

NARRATIVE: CASE EVENT DATE: 20180718
